FAERS Safety Report 9181740 (Version 1)
Quarter: 2013Q1

REPORT INFORMATION
  Report Type: Spontaneous
  Country: US (occurrence: US)
  Receive Date: 20130322
  Receipt Date: 20130322
  Transmission Date: 20140127
  Serious: Yes (Other)
  Sender: FDA-Public Use
  Company Number: US-JNJFOC-20130311870

PATIENT
  Sex: Female

DRUGS (3)
  1. DOXORUBICIN [Suspect]
     Indication: OVARIAN EPITHELIAL CANCER
     Dosage: RECEIVED A TOTAL OF 6 CYCLES
     Route: 042
  2. FARLETUZUMAB [Suspect]
     Indication: OVARIAN EPITHELIAL CANCER
     Dosage: 2.5 MG/KG Q4 WKS; MAINTENANCE 2.5 MG/KG WEEKLY INITIALLY AND LATER 7.5 MG/KG Q3 WKS.
     Route: 065
  3. CARBOPLATIN [Suspect]
     Indication: OVARIAN EPITHELIAL CANCER
     Dosage: AUC 4-5 (RECEIVED A TOTAL OF 3 CYCLES)
     Route: 065

REACTIONS (1)
  - Small intestinal obstruction [Unknown]
